FAERS Safety Report 7931135-4 (Version None)
Quarter: 2011Q4

REPORT INFORMATION
  Report Type: 
  Country: None (occurrence: None)
  Receive Date: 20111121
  Receipt Date: 20111115
  Transmission Date: 20120403
  Serious: Yes (Hospitalization)
  Sender: FDA-Public Use
  Company Number: US-ALEXION-A201101618

PATIENT
  Sex: Male

DRUGS (1)
  1. SOLIRIS [Suspect]
     Indication: PAROXYSMAL NOCTURNAL HAEMOGLOBINURIA
     Dosage: UNK
     Route: 042

REACTIONS (11)
  - NASOPHARYNGITIS [None]
  - BACK PAIN [None]
  - HYPERHIDROSIS [None]
  - UPPER RESPIRATORY TRACT INFECTION [None]
  - FATIGUE [None]
  - FEELING ABNORMAL [None]
  - ABDOMINAL PAIN [None]
  - MUSCLE SPASMS [None]
  - PYREXIA [None]
  - PAIN [None]
  - CHEST PAIN [None]
